FAERS Safety Report 11095956 (Version 1)
Quarter: 2015Q2

REPORT INFORMATION
  Report Type: Spontaneous
  Country: KR (occurrence: KR)
  Receive Date: 20150507
  Receipt Date: 20150507
  Transmission Date: 20150821
  Serious: No
  Sender: FDA-Public Use
  Company Number: KR-ACTELION-A-CH2015-117070

PATIENT
  Sex: Female

DRUGS (1)
  1. TRACLEER [Suspect]
     Active Substance: BOSENTAN\BOSENTAN MONOHYDRATE
     Indication: OCCUPATIONAL EXPOSURE TO PRODUCT
     Dosage: UNK UNK, UNK
     Route: 065
     Dates: start: 20150423, end: 20150423

REACTIONS (2)
  - Exposure during pregnancy [Unknown]
  - Occupational exposure to product [Unknown]

NARRATIVE: CASE EVENT DATE: 20150423
